FAERS Safety Report 10276394 (Version 1)
Quarter: 2014Q3

REPORT INFORMATION
  Report Type: Spontaneous
  Country: FR (occurrence: FR)
  Receive Date: 20140703
  Receipt Date: 20140703
  Transmission Date: 20150326
  Serious: Yes (Other)
  Sender: FDA-Public Use
  Company Number: FR-ASTRAZENECA-2014SE46538

PATIENT
  Age: 31832 Day
  Sex: Female

DRUGS (7)
  1. XEROQUEL [Suspect]
     Active Substance: QUETIAPINE FUMARATE
     Route: 048
     Dates: start: 20140307, end: 20140311
  2. RISPERDAL [Suspect]
     Active Substance: RISPERIDONE
     Route: 048
     Dates: start: 20140304, end: 20140307
  3. TALC GIFERE [Concomitant]
     Dates: start: 20140214
  4. SERESTA [Concomitant]
     Active Substance: OXAZEPAM
     Dosage: 10 MG, IF NEEDED, THREE PER DAY MAXIMUM
     Route: 048
     Dates: start: 20140205
  5. STILNOX [Concomitant]
     Active Substance: ZOLPIDEM TARTRATE
     Route: 048
     Dates: start: 20140205
  6. SEROPLEX [Suspect]
     Active Substance: ESCITALOPRAM OXALATE
     Indication: DEPRESSION
     Route: 048
     Dates: start: 20140226
  7. CALCIDOSE VITAMINE D [Concomitant]
     Active Substance: CALCIUM\CHOLECALCIFEROL
     Dosage: 500MG/400 IU 2 DF PER DAY
     Route: 048
     Dates: start: 20140210, end: 20140331

REACTIONS (2)
  - Hyperkalaemia [Unknown]
  - Ventricular extrasystoles [Recovered/Resolved]

NARRATIVE: CASE EVENT DATE: 20140308
